FAERS Safety Report 6107396-3 (Version None)
Quarter: 2009Q1

REPORT INFORMATION
  Report Type: 
  Country: None (occurrence: None)
  Receive Date: 20090227
  Receipt Date: 20080610
  Transmission Date: 20090719
  Serious: Yes (Other)
  Sender: FDA-Public Use
  Company Number: RB-1817-2008

PATIENT

DRUGS (1)
  1. SUBUTEX [Suspect]
     Indication: DRUG USE FOR UNKNOWN INDICATION
     Dosage: MOTHER TOOK 2-4MG DAILY TRANSPLACENTAL
     Route: 064
     Dates: end: 20080501

REACTIONS (1)
  - DRUG WITHDRAWAL SYNDROME NEONATAL [None]
